FAERS Safety Report 11197432 (Version 1)
Quarter: 2015Q2

REPORT INFORMATION
  Report Type: Spontaneous
  Country: TW (occurrence: TW)
  Receive Date: 20150617
  Receipt Date: 20150617
  Transmission Date: 20150821
  Serious: Yes (Hospitalization, Other)
  Sender: FDA-Public Use
  Company Number: TW-GLAXOSMITHKLINE-TW2015GSK084935

PATIENT
  Age: 70 Year
  Sex: Female

DRUGS (10)
  1. MIRTAZAPINE. [Concomitant]
     Active Substance: MIRTAZAPINE
     Dosage: 30 MG, QD
  2. BUPROPION [Suspect]
     Active Substance: BUPROPION
     Dosage: 150 MG, QD
  3. QUETIAPINE [Suspect]
     Active Substance: QUETIAPINE
     Dosage: 200 MG, QD
  4. ESCITALOPRAM [Concomitant]
     Active Substance: ESCITALOPRAM OXALATE
     Indication: MAJOR DEPRESSION
     Dosage: 10 MG, UNK
  5. SULPIRIDE [Concomitant]
     Active Substance: SULPIRIDE
     Indication: MAJOR DEPRESSION
     Dosage: 200 MG, QD
  6. QUETIAPINE [Suspect]
     Active Substance: QUETIAPINE
     Dosage: 400 MG, UNK
  7. TRAZODONE [Suspect]
     Active Substance: TRAZODONE HYDROCHLORIDE
     Dosage: 100 UNK, UNK
  8. ECT [Suspect]
     Active Substance: UNSPECIFIED INGREDIENT
  9. BUPROPION [Suspect]
     Active Substance: BUPROPION
     Dosage: 300 MG, UNK
  10. TRAZODONE [Suspect]
     Active Substance: TRAZODONE HYDROCHLORIDE
     Dosage: 50 MG, UNK

REACTIONS (13)
  - Hypertension [Unknown]
  - Disorientation [Unknown]
  - Disorganised speech [Unknown]
  - Tremor [Unknown]
  - Agitation [Unknown]
  - Serotonin syndrome [Recovered/Resolved]
  - Body temperature increased [Unknown]
  - Hyperreflexia [Unknown]
  - Confusional state [Unknown]
  - Tachycardia [Unknown]
  - Muscle rigidity [Unknown]
  - Myoclonus [Unknown]
  - Hyperhidrosis [Unknown]
